FAERS Safety Report 11291580 (Version 2)
Quarter: 2016Q3

REPORT INFORMATION
  Report Type: Spontaneous
  Country: US (occurrence: US)
  Receive Date: 20150722
  Receipt Date: 20160727
  Transmission Date: 20161109
  Serious: Yes (Hospitalization, Other)
  Sender: FDA-Public Use
  Company Number: US-ASTRAZENECA-2015SE69980

PATIENT
  Age: 74 Year
  Sex: Female
  Weight: 69.4 kg

DRUGS (18)
  1. TRENTAL [Concomitant]
     Active Substance: PENTOXIFYLLINE
     Indication: MUSCLE SPASMS
     Dosage: 430 MG EVERY 6 HOURS
     Route: 048
     Dates: start: 2013
  2. DIAZEPAM. [Concomitant]
     Active Substance: DIAZEPAM
     Indication: ANXIETY
     Dosage: 5 MGEVERY 12 HOURS
     Dates: start: 2010
  3. NORCO [Concomitant]
     Active Substance: ACETAMINOPHEN\HYDROCODONE BITARTRATE
     Indication: PAIN
     Dosage: 1 UNK DAILY
     Route: 048
  4. CARVIDILOL [Concomitant]
     Indication: BLOOD PRESSURE ABNORMAL
     Dosage: 3.125 MG EVERY 12 HOURS
     Dates: start: 2010
  5. ROCEPHIN [Concomitant]
     Active Substance: CEFTRIAXONE SODIUM
     Route: 042
     Dates: start: 20160719
  6. VITAMIN E [Concomitant]
     Active Substance: .ALPHA.-TOCOPHEROL
     Indication: THERAPY CESSATION
     Route: 048
  7. LANTUS [Concomitant]
     Active Substance: INSULIN GLARGINE
     Indication: DIABETES MELLITUS
     Route: 058
     Dates: start: 2005
  8. AMLODIPINE [Concomitant]
     Active Substance: AMLODIPINE BESYLATE
     Indication: BLOOD PRESSURE ABNORMAL
     Route: 048
     Dates: start: 201503
  9. ASPIRIN. [Concomitant]
     Active Substance: ASPIRIN
     Indication: ANTICOAGULANT THERAPY
     Route: 048
     Dates: start: 2010
  10. BYETTA [Suspect]
     Active Substance: EXENATIDE
     Indication: DIABETES MELLITUS
     Dosage: 250 MCG / 1.2 ML; 1.2 ML EVERY 12 HOURS
     Route: 058
     Dates: start: 2006
  11. WOMANS MULTIVITAMIN FOR 50+ [Concomitant]
     Indication: THERAPY CESSATION
     Dosage: DAILY
  12. PLAVIX [Concomitant]
     Active Substance: CLOPIDOGREL BISULFATE
     Indication: ANTICOAGULANT THERAPY
     Route: 048
     Dates: start: 2010
  13. IRON [Concomitant]
     Active Substance: IRON
     Indication: IRON DEFICIENCY
     Dosage: 65 MG EVERY 6 HOURS
     Route: 048
     Dates: start: 2013
  14. ENALOPRIL [Concomitant]
     Indication: BLOOD PRESSURE ABNORMAL
     Route: 048
  15. QUININE SULFATE. [Concomitant]
     Active Substance: QUININE SULFATE
     Indication: MUSCLE SPASMS
     Dosage: 2 UNK AT NIGHT
     Route: 048
     Dates: start: 2006
  16. ATORVASTATIN [Concomitant]
     Active Substance: ATORVASTATIN
     Indication: BLOOD CHOLESTEROL ABNORMAL
     Dosage: DAILY
     Route: 048
     Dates: start: 2013
  17. VITAMIN D3 [Concomitant]
     Active Substance: CHOLECALCIFEROL
     Indication: THERAPY CESSATION
     Route: 048
     Dates: start: 2013
  18. AUGMENTIN [Concomitant]
     Active Substance: AMOXICILLIN\CLAVULANATE POTASSIUM
     Dosage: 850 MG, TWICE A DAY
     Route: 048
     Dates: start: 20160616

REACTIONS (6)
  - Drug dose omission [Unknown]
  - Peripheral artery occlusion [Unknown]
  - Urinary tract infection [Not Recovered/Not Resolved]
  - Skin discolouration [Unknown]
  - Weight decreased [Unknown]
  - Wound [Unknown]

NARRATIVE: CASE EVENT DATE: 2015
